FAERS Safety Report 6720121-8 (Version None)
Quarter: 2010Q2

REPORT INFORMATION
  Report Type: 
  Country: None (occurrence: None)
  Receive Date: 20100507
  Receipt Date: 20100421
  Transmission Date: 20101027
  Serious: Yes (Hospitalization)
  Sender: FDA-Public Use
  Company Number: DSA_43066_2010

PATIENT
  Sex: Male

DRUGS (9)
  1. WELLBUTRIN XL [Suspect]
     Indication: DRUG USE FOR UNKNOWN INDICATION
     Dosage: (150 MG QD ORAL), (300 MG QD ORAL)
     Route: 048
     Dates: start: 20100219, end: 20100225
  2. WELLBUTRIN XL [Suspect]
     Indication: DRUG USE FOR UNKNOWN INDICATION
     Dosage: (150 MG QD ORAL), (300 MG QD ORAL)
     Route: 048
     Dates: start: 20100226, end: 20100308
  3. WELLBUTRIN XL [Suspect]
     Indication: DRUG USE FOR UNKNOWN INDICATION
     Dosage: (150 MG QD ORAL), (300 MG QD ORAL)
     Route: 048
     Dates: start: 20100309, end: 20100323
  4. SURMONTIL /00051802/ [Concomitant]
  5. LITHIUM SULFATE [Concomitant]
  6. LYRICA [Concomitant]
  7. PLAVIX [Concomitant]
  8. AMLODIPIN /00972401/ [Concomitant]
  9. PRAVASTATIN [Concomitant]

REACTIONS (5)
  - DRY MOUTH [None]
  - FATIGUE [None]
  - TREMOR [None]
  - VENTRICULAR EXTRASYSTOLES [None]
  - VERTIGO [None]
